FAERS Safety Report 15222324 (Version 1)
Quarter: 2018Q4

REPORT INFORMATION
  Report Type: Spontaneous
  Country: US (occurrence: US)
  Receive Date: 20180731
  Receipt Date: 20180731
  Transmission Date: 20190204
  Serious: Yes (Hospitalization)
  Sender: FDA-Public Use
  Company Number: US-STANDARD HOMEOPATHIC COMPANY-2053030

PATIENT
  Age: 69 Year
  Sex: Male
  Weight: 181.82 kg

DRUGS (6)
  1. HE SHOU WU POWDER [Suspect]
     Active Substance: HERBALS
  2. DIATOMACEOUS EARTH POWDER [Suspect]
     Active Substance: DIETARY SUPPLEMENT
  3. BIOPLASMA [Suspect]
     Active Substance: HOMEOPATHICS
     Indication: PHYTOTHERAPY
     Route: 048
     Dates: start: 20180712
  4. DIATOMACEOUS FOOD GRADE SUPPLEMENT [Suspect]
     Active Substance: DIETARY SUPPLEMENT
  5. CAMU POWDER [Suspect]
     Active Substance: DIETARY SUPPLEMENT
  6. ESPOMA VEGETABLE GRANULES [Suspect]
     Active Substance: UNSPECIFIED INGREDIENT

REACTIONS (2)
  - Dyspnoea [None]
  - Silicosis [None]

NARRATIVE: CASE EVENT DATE: 20180712
